FAERS Safety Report 10085206 (Version 2)
Quarter: 2014Q2

REPORT INFORMATION
  Report Type: Spontaneous
  Country: BR (occurrence: BR)
  Receive Date: 20140417
  Receipt Date: 20140417
  Transmission Date: 20141212
  Serious: Yes (Other)
  Sender: FDA-Public Use
  Company Number: PHHY2014BR008309

PATIENT
  Age: 44 Year
  Sex: Male
  Weight: 90 kg

DRUGS (12)
  1. ANAFRANIL 75 [Suspect]
     Indication: PANIC ATTACK
     Dosage: 2 DF, DAILY
     Route: 048
     Dates: start: 1999
  2. ANAFRANIL 75 [Suspect]
     Indication: DEPRESSION
  3. ANAFRANIL [Suspect]
     Indication: PANIC ATTACK
     Dosage: 8 DF, DAILY
     Route: 048
     Dates: start: 1991
  4. ANAFRANIL [Suspect]
     Indication: DEPRESSION
  5. CLOMIPRAMINE [Suspect]
     Dosage: 8 DF, DAILY
     Route: 048
     Dates: end: 20131218
  6. FLUOXETINE [Suspect]
     Indication: DEPRESSION
     Dosage: 3 DF, DAILY
     Route: 048
     Dates: end: 20131218
  7. VALIUM [Suspect]
     Indication: PANIC ATTACK
     Dosage: 6 TO 8 TABLETS, DAILY
     Route: 048
     Dates: start: 1991
  8. VALIUM [Suspect]
     Indication: DEPRESSION
  9. TRYPTANOL//AMITRIPTYLINE HYDROCHLORIDE [Suspect]
     Indication: DEPRESSION
     Dosage: 8 DF, DAILY
     Route: 048
     Dates: start: 1991
  10. LEXOTAN [Suspect]
     Indication: ANXIETY
     Dosage: 6 DF, DAILY
     Route: 048
     Dates: start: 1991
  11. NEULEPTIL [Suspect]
     Dosage: 30 GTT, DAILY
     Route: 048
     Dates: start: 1991
  12. DIAZEPAM [Suspect]
     Dosage: 1 DF, DAILY

REACTIONS (6)
  - Suicide attempt [Recovered/Resolved]
  - Lower limb fracture [Unknown]
  - Salivary hypersecretion [Unknown]
  - Foaming at mouth [Unknown]
  - Palpitations [Recovered/Resolved]
  - Headache [Recovered/Resolved]
